FAERS Safety Report 6192599-2 (Version None)
Quarter: 2009Q2

REPORT INFORMATION
  Report Type: 
  Country: None (occurrence: None)
  Receive Date: 20090518
  Receipt Date: 20090506
  Transmission Date: 20091009
  Serious: Yes (Other)
  Sender: FDA-Public Use
  Company Number: US-BAYER-US-SHR-03-014146

PATIENT
  Age: 77 Year
  Sex: Female
  Weight: 57 kg

DRUGS (9)
  1. LEUKINE [Suspect]
     Indication: MALIGNANT MELANOMA
     Dosage: UNIT DOSE: 250 ?G/M2
     Route: 058
     Dates: start: 20030811, end: 20060101
  2. LIPITOR [Concomitant]
     Dosage: UNIT DOSE: 10 MG
     Route: 048
  3. FOSAMAX [Concomitant]
     Dosage: UNIT DOSE: 70 MG
  4. VITAMIN E [Concomitant]
     Dosage: UNK, 1X/DAY
     Route: 048
  5. VITAMIN B6 [Concomitant]
     Dosage: UNK, 1X/DAY
     Route: 048
  6. VITAMIN B-12 [Concomitant]
     Dosage: UNK, 1X/DAY
     Route: 048
  7. CALCIUM WITH VITAMIN D [Concomitant]
     Dosage: UNK, 1X/DAY
     Route: 048
  8. ASCORBIC ACID [Concomitant]
     Dosage: UNK, 1X/DAY
     Route: 048
  9. GLUCOSAMINE W/CHONDROITIN SULFATES [Concomitant]
     Dosage: 500/400 MG
     Route: 048

REACTIONS (3)
  - DIZZINESS [None]
  - HEADACHE [None]
  - METASTATIC MALIGNANT MELANOMA [None]
